FAERS Safety Report 25739308 (Version 1)
Quarter: 2025Q3

REPORT INFORMATION
  Report Type: Report from Study
  Country: JP (occurrence: JP)
  Receive Date: 20250829
  Receipt Date: 20250829
  Transmission Date: 20251021
  Serious: Yes (Other)
  Sender: ROCHE
  Company Number: JP-ROCHE-10000369588

PATIENT

DRUGS (4)
  1. ATEZOLIZUMAB [Suspect]
     Active Substance: ATEZOLIZUMAB
     Indication: Non-small cell lung cancer
     Route: 065
  2. PEMBROLIZUMAB [Suspect]
     Active Substance: PEMBROLIZUMAB
     Indication: Non-small cell lung cancer
     Route: 065
  3. NIVOLUMAB [Suspect]
     Active Substance: NIVOLUMAB
     Indication: Non-small cell lung cancer
     Route: 065
  4. DURVALUMAB [Suspect]
     Active Substance: DURVALUMAB
     Indication: Non-small cell lung cancer
     Route: 065

REACTIONS (15)
  - Pneumonitis [Unknown]
  - Skin disorder [Unknown]
  - Thyroid disorder [Unknown]
  - Hepatotoxicity [Unknown]
  - Colitis [Unknown]
  - Cardiomyopathy [Unknown]
  - Arthritis [Unknown]
  - Cytokine release syndrome [Unknown]
  - Nephropathy toxic [Unknown]
  - Myositis [Unknown]
  - Cardiac failure [Unknown]
  - Gastrointestinal perforation [Unknown]
  - Infusion related reaction [Unknown]
  - Hypopituitarism [Unknown]
  - Pyrexia [Unknown]
